FAERS Safety Report 17845140 (Version 1)
Quarter: 2020Q2

REPORT INFORMATION
  Report Type: Spontaneous
  Country: US (occurrence: US)
  Receive Date: 20200531
  Receipt Date: 20200531
  Transmission Date: 20200714
  Serious: No
  Sender: FDA-Public Use
  Company Number: None

PATIENT
  Age: 57 Year
  Sex: Male
  Weight: 98 kg

DRUGS (1)
  1. REMDESIVIR. [Suspect]
     Active Substance: REMDESIVIR
     Route: 041
     Dates: start: 20200520, end: 20200527

REACTIONS (2)
  - Haemorrhage [None]
  - Thrombocytopenia [None]

NARRATIVE: CASE EVENT DATE: 20200526
